FAERS Safety Report 13061745 (Version 1)
Quarter: 2016Q4

REPORT INFORMATION
  Report Type: Spontaneous
  Country: US (occurrence: US)
  Receive Date: 20161226
  Receipt Date: 20161226
  Transmission Date: 20170207
  Serious: No
  Sender: FDA-Public Use
  Company Number: US-NOVEN PHARMACEUTICALS, INC.-US2016002379

PATIENT

DRUGS (5)
  1. SYNERA [Concomitant]
     Active Substance: LIDOCAINE\TETRACAINE
     Indication: LOCAL ANAESTHESIA
  2. MINIVELLE [Suspect]
     Active Substance: ESTRADIOL
     Indication: IN VITRO FERTILISATION
     Dosage: USING TWO PATCHES OF 0.1 MG EVERY THREE DAYS
     Route: 062
     Dates: start: 2013
  3. PROGESTERONE IN OIL [Concomitant]
  4. ESTRADIOL. [Concomitant]
     Active Substance: ESTRADIOL
     Dosage: 2 MG, UNKNOWN
     Route: 048
  5. PRENATAL VITAMINS [Concomitant]
     Active Substance: VITAMINS
     Route: 048

REACTIONS (5)
  - Off label use [Unknown]
  - Prescribed overdose [Not Recovered/Not Resolved]
  - Wrong technique in product usage process [Not Recovered/Not Resolved]
  - Product adhesion issue [Unknown]
  - No adverse event [Unknown]

NARRATIVE: CASE EVENT DATE: 2014
